FAERS Safety Report 11114412 (Version 2)
Quarter: 2015Q2

REPORT INFORMATION
  Report Type: Spontaneous
  Country: FR (occurrence: FR)
  Receive Date: 20150515
  Receipt Date: 20150526
  Transmission Date: 20150821
  Serious: Yes (Other)
  Sender: FDA-Public Use
  Company Number: FR-ROCHE-1577482

PATIENT
  Age: 20 Year
  Sex: Male

DRUGS (20)
  1. CLOZAPINE. [Suspect]
     Active Substance: CLOZAPINE
     Dosage: (100 MG IN MORNING, 150 MG AT LUNCHTIME AND 200 MG IN THE EVENING)
     Route: 048
     Dates: start: 20140902
  2. CLOZAPINE. [Suspect]
     Active Substance: CLOZAPINE
     Route: 048
     Dates: start: 20111007
  3. CLOZAPINE. [Suspect]
     Active Substance: CLOZAPINE
     Route: 048
     Dates: start: 20121116
  4. CLOZAPINE. [Suspect]
     Active Substance: CLOZAPINE
     Route: 048
     Dates: start: 20130418
  5. LOXAPAC [Suspect]
     Active Substance: LOXAPINE SUCCINATE
     Indication: ABNORMAL BEHAVIOUR
     Dosage: 100 DROPS, IN THE EVENING
     Route: 030
     Dates: start: 20150202
  6. LOXAPAC [Suspect]
     Active Substance: LOXAPINE SUCCINATE
     Route: 030
     Dates: start: 20150310, end: 20150320
  7. VALIUM [Suspect]
     Active Substance: DIAZEPAM
     Indication: SEDATION
     Route: 048
     Dates: start: 2011, end: 20150312
  8. CLOZAPINE. [Suspect]
     Active Substance: CLOZAPINE
     Dosage: (200 MG IN THE MORNING, 100 MG AT LUNCHTIME, 200 MG IN THE EVENING).
     Route: 048
     Dates: start: 20150313
  9. VALIUM [Suspect]
     Active Substance: DIAZEPAM
     Dosage: HALF A TABLET
     Route: 048
     Dates: start: 20150310, end: 20150312
  10. VALIUM [Suspect]
     Active Substance: DIAZEPAM
     Dosage: RESTARTED
     Route: 048
     Dates: start: 20150320
  11. CLOZAPINE. [Suspect]
     Active Substance: CLOZAPINE
     Route: 048
     Dates: start: 20130522
  12. CLOZAPINE. [Suspect]
     Active Substance: CLOZAPINE
     Route: 048
     Dates: start: 20140429
  13. CLOZAPINE. [Suspect]
     Active Substance: CLOZAPINE
     Route: 048
     Dates: start: 20141027
  14. RISPERDAL [Concomitant]
     Active Substance: RISPERIDONE
     Indication: ABNORMAL BEHAVIOUR
     Dosage: IN THE EVENING
     Route: 048
     Dates: start: 20141212, end: 20150310
  15. CLOZAPINE. [Suspect]
     Active Substance: CLOZAPINE
     Indication: ABNORMAL BEHAVIOUR
     Route: 048
     Dates: start: 2009
  16. RISPERDAL [Concomitant]
     Active Substance: RISPERIDONE
     Route: 065
     Dates: start: 20150225
  17. LEPTICUR [Concomitant]
     Active Substance: TROPATEPINE HYDROCHLORIDE
     Indication: PARKINSONISM
     Dosage: IN MORNING
     Route: 065
  18. CLOZAPINE. [Suspect]
     Active Substance: CLOZAPINE
     Dosage: (200 MG IN THE MORNING AND IN THE EVENING)
     Route: 048
     Dates: start: 20150320
  19. MINIRIN [Concomitant]
     Active Substance: DESMOPRESSIN ACETATE
     Indication: ENURESIS
     Dosage: IN THE EVENING
     Route: 065
  20. TERCIAN [Concomitant]
     Active Substance: CYAMEMAZINE
     Route: 065
     Dates: end: 20150120

REACTIONS (1)
  - Generalised tonic-clonic seizure [Recovered/Resolved]

NARRATIVE: CASE EVENT DATE: 20150320
